FAERS Safety Report 9690763 (Version 1)
Quarter: 2013Q4

REPORT INFORMATION
  Report Type: Spontaneous
  Country: US (occurrence: None)
  Receive Date: 20131114
  Receipt Date: 20131114
  Transmission Date: 20140711
  Serious: Yes (Life-Threatening)
  Sender: FDA-Public Use
  Company Number: None

PATIENT
  Age: 54 Year
  Sex: Female
  Weight: 73.48 kg

DRUGS (1)
  1. OXYTROL [Suspect]
     Indication: CYSTITIS
     Dosage: 1 PATCH APPLIED TO A SURFACE USUALLY THE SKIN.
     Dates: start: 20131108, end: 20131111

REACTIONS (3)
  - Atrial fibrillation [None]
  - Product packaging issue [None]
  - Product label issue [None]
